FAERS Safety Report 7745303-8 (Version None)
Quarter: 2011Q3

REPORT INFORMATION
  Report Type: 
  Country: None (occurrence: None)
  Receive Date: 20110907
  Receipt Date: 20110823
  Transmission Date: 20111222
  Serious: Yes (Death)
  Sender: FDA-Public Use
  Company Number: KAD201108-000006

PATIENT
  Age: 59 Year
  Sex: Female

DRUGS (2)
  1. PEGINTERFERON ALFA-2B [Suspect]
     Dosage: 80 MICROGRAM ONCE A WEEK, SUBCUTANEOUS
     Route: 058
     Dates: start: 20090201
  2. RIBAVIRIN [Suspect]
     Indication: HEPATITIS C
     Dosage: 600MG/DAY TWICE DAILY, ORAL
     Route: 048
     Dates: start: 20090201

REACTIONS (19)
  - SEPTIC SHOCK [None]
  - DEPRESSED LEVEL OF CONSCIOUSNESS [None]
  - PROTHROMBIN TIME PROLONGED [None]
  - PALLOR [None]
  - FIBRIN DEGRADATION PRODUCTS INCREASED [None]
  - BLOOD PH DECREASED [None]
  - AZOTAEMIA [None]
  - PYREXIA [None]
  - BACTERIAL INFECTION [None]
  - THROMBOCYTOPENIA [None]
  - SKIN TURGOR DECREASED [None]
  - BLOOD UREA INCREASED [None]
  - PLEURAL EFFUSION [None]
  - PURPURA [None]
  - SOMNOLENCE [None]
  - HYPOALBUMINAEMIA [None]
  - MOUTH HAEMORRHAGE [None]
  - ABSCESS [None]
  - STAPHYLOCOCCAL SEPSIS [None]
